FAERS Safety Report 16996349 (Version 1)
Quarter: 2019Q4

REPORT INFORMATION
  Report Type: Spontaneous
  Country: US (occurrence: US)
  Receive Date: 20191105
  Receipt Date: 20191105
  Transmission Date: 20200122
  Serious: No
  Sender: FDA-Public Use
  Company Number: US-RADIUS HEALTH INC.-2019US002672

PATIENT
  Sex: Female

DRUGS (1)
  1. TYMLOS [Suspect]
     Active Substance: ABALOPARATIDE
     Indication: OSTEOPOROSIS POSTMENOPAUSAL
     Dosage: 80MCG, UNK
     Route: 058
     Dates: start: 201904, end: 20190801

REACTIONS (4)
  - Swelling face [Recovering/Resolving]
  - Chest pain [Recovering/Resolving]
  - Sensory disturbance [Recovering/Resolving]
  - Flushing [Recovering/Resolving]
